FAERS Safety Report 10504135 (Version 1)
Quarter: 2014Q4

REPORT INFORMATION
  Report Type: Spontaneous
  Country: US (occurrence: None)
  Receive Date: 20141006
  Receipt Date: 20141006
  Transmission Date: 20150528
  Serious: Yes (Hospitalization)
  Sender: FDA-Public Use
  Company Number: PP-AE14-000392

PATIENT
  Age: 3 Year
  Sex: Female

DRUGS (1)
  1. PEDIACARE CHILDRENS ALLERGY [Suspect]
     Active Substance: DIPHENHYDRAMINE HYDROCHLORIDE
     Route: 048
     Dates: start: 20140926, end: 20140926

REACTIONS (3)
  - Somnolence [None]
  - Accidental exposure to product [None]
  - Accidental overdose [None]

NARRATIVE: CASE EVENT DATE: 20140926
